FAERS Safety Report 7984723-3 (Version None)
Quarter: 2011Q4

REPORT INFORMATION
  Report Type: 
  Country: None (occurrence: None)
  Receive Date: 20111216
  Receipt Date: 20111205
  Transmission Date: 20120403
  Serious: Yes (Death)
  Sender: FDA-Public Use
  Company Number: AT-VALEANT-2011VX003617

PATIENT
  Age: 56 Year
  Sex: Male
  Weight: 68 kg

DRUGS (11)
  1. IRINOTECAN HCL [Suspect]
     Indication: COLORECTAL CANCER METASTATIC
     Route: 042
     Dates: start: 20110921, end: 20111019
  2. SUCRALFATE [Concomitant]
     Route: 048
     Dates: start: 20111005
  3. AMITRIPTYLINE HCL [Concomitant]
     Route: 048
     Dates: start: 20110921
  4. FLUOROURACIL [Suspect]
     Indication: COLORECTAL CANCER METASTATIC
     Route: 042
     Dates: start: 20110921, end: 20111019
  5. BEVACIZUMAB [Suspect]
     Indication: COLORECTAL CANCER METASTATIC
     Route: 042
     Dates: start: 20111102
  6. PANTOPRAZOLE [Concomitant]
     Route: 048
     Dates: start: 20110921
  7. XEFO [Concomitant]
     Route: 048
     Dates: start: 20110921
  8. ENALAPRIL MALEATE [Concomitant]
     Route: 048
     Dates: start: 20111005
  9. METOCLOPRAMIDE HYDROCHLORIDE [Concomitant]
     Route: 048
     Dates: start: 20111005
  10. LEUCOVORIN CALCIUM [Suspect]
     Indication: COLORECTAL CANCER METASTATIC
     Route: 042
     Dates: start: 20110921, end: 20111019
  11. DURAGESIC-100 [Concomitant]
     Route: 062
     Dates: start: 20110907

REACTIONS (1)
  - DEATH [None]
